FAERS Safety Report 7201895-9 (Version None)
Quarter: 2010Q4

REPORT INFORMATION
  Report Type: 
  Country: None (occurrence: None)
  Receive Date: 20101215
  Receipt Date: 20101105
  Transmission Date: 20110411
  Serious: Yes (Hospitalization, Other)
  Sender: FDA-Public Use
  Company Number: ACO_20716_2010

PATIENT
  Age: 53 Year
  Sex: Male

DRUGS (4)
  1. AMPYRA [Suspect]
     Indication: PRODUCT USED FOR UNKNOWN INDICATION
     Dosage: 10 MG, BID, ORAL
     Route: 048
     Dates: start: 20100701, end: 20101001
  2. AMPYRA [Suspect]
  3. MULTIVITAMIN /00831701/ (VITAMINS NOS) [Concomitant]
  4. VITAMIN C /00008001/ (ASCORBIC ACID) [Concomitant]

REACTIONS (3)
  - PAIN IN EXTREMITY [None]
  - PULMONARY EMBOLISM [None]
  - URINARY TRACT INFECTION [None]
